FAERS Safety Report 6288783-X (Version None)
Quarter: 2009Q3

REPORT INFORMATION
  Report Type: 
  Country: None (occurrence: None)
  Receive Date: 20090727
  Receipt Date: 20090713
  Transmission Date: 20100115
  Serious: Yes (Life-Threatening, Disabling, Other)
  Sender: FDA-Public Use
  Company Number: 2009S1012389

PATIENT
  Age: 75 Year
  Sex: Male

DRUGS (15)
  1. TRAZODONE HCL [Suspect]
     Indication: DEPRESSION
     Dosage: 150 MG; ORAL
     Route: 048
     Dates: start: 20090121, end: 20090331
  2. BYETTA [Suspect]
     Indication: DIABETES MELLITUS
     Dosage: 10 UG; SUBCUTANEOUS
     Route: 058
     Dates: start: 20021120, end: 20090331
  3. ALLOPURINOL [Concomitant]
  4. ASPIRIN [Concomitant]
  5. ATORVASTATIN CALCIUM [Concomitant]
  6. CARVEDILOL [Concomitant]
  7. COLCHICINE (COLCHICINE) [Concomitant]
  8. ENALAPRIL MALEATE [Concomitant]
  9. FUROSEMIDE [Concomitant]
  10. GLYCERYL TRINITRATE (GLYCERYL TRINITRATE) [Concomitant]
  11. ISPAGHULA HUSK /00029101/ (PLANTAGO OVATA) [Concomitant]
  12. NICORANDIL (NICORANDIL) [Concomitant]
  13. PARACETAMOL (PARACETAMOL) [Concomitant]
  14. QUININE SULPHATE (QUININE SULFATE) [Concomitant]
  15. TRAZODONE HCL [Concomitant]

REACTIONS (1)
  - RENAL FAILURE ACUTE [None]
